FAERS Safety Report 20191300 (Version 3)
Quarter: 2022Q1

REPORT INFORMATION
  Report Type: Report from Study
  Country: US (occurrence: US)
  Receive Date: 20211216
  Receipt Date: 20220216
  Transmission Date: 20220423
  Serious: No
  Sender: FDA-Public Use
  Company Number: US-NOVARTISTESTPH-NVSC2021US287467

PATIENT
  Sex: Male

DRUGS (1)
  1. ENTRESTO [Suspect]
     Active Substance: SACUBITRIL\VALSARTAN
     Indication: Product used for unknown indication
     Dosage: 50 MG, QD (24/26 MG)
     Route: 065
     Dates: start: 2020

REACTIONS (6)
  - Dyspnoea [Unknown]
  - Inappropriate schedule of product administration [Unknown]
  - Swelling [Recovering/Resolving]
  - Blood cholesterol increased [Recovering/Resolving]
  - Blood magnesium decreased [Recovered/Resolved]
  - Hypertension [Unknown]
